FAERS Safety Report 20062694 (Version 1)
Quarter: 2021Q4

REPORT INFORMATION
  Report Type: Spontaneous
  Country: US (occurrence: US)
  Receive Date: 20211112
  Receipt Date: 20211112
  Transmission Date: 20220303
  Serious: No
  Sender: FDA-Public Use
  Company Number: US-MYLANLABS-2021M1074588

PATIENT
  Age: 51 Year
  Sex: Male
  Weight: 113 kg

DRUGS (2)
  1. WIXELA INHUB [Suspect]
     Active Substance: FLUTICASONE PROPIONATE\SALMETEROL XINAFOATE
     Indication: Asthma
     Dosage: 250/50 MICROGRAM (BID)
     Route: 055
  2. LEVOTHYROXINE                      /00068002/ [Concomitant]
     Indication: Thyroid disorder
     Dosage: UNK

REACTIONS (3)
  - Device issue [Not Recovered/Not Resolved]
  - Product dose omission issue [Unknown]
  - Wrong technique in device usage process [Unknown]

NARRATIVE: CASE EVENT DATE: 20211018
